FAERS Safety Report 17150549 (Version 1)
Quarter: 2019Q4

REPORT INFORMATION
  Report Type: Spontaneous
  Country: US (occurrence: US)
  Receive Date: 20191213
  Receipt Date: 20191213
  Transmission Date: 20200122
  Serious: No
  Sender: FDA-Public Use
  Company Number: US-LEO PHARMA-326945

PATIENT
  Age: 22 Year
  Sex: Male
  Weight: 79.36 kg

DRUGS (2)
  1. PROTOPIC [Suspect]
     Active Substance: TACROLIMUS
     Indication: SKIN IRRITATION
     Dosage: THIN LAYER
     Route: 061
     Dates: start: 20190816, end: 201910
  2. PROTOPIC [Suspect]
     Active Substance: TACROLIMUS
     Indication: ERYTHEMA

REACTIONS (4)
  - Drug ineffective for unapproved indication [Unknown]
  - Product use in unapproved indication [Unknown]
  - Erythema [Recovered/Resolved]
  - Condition aggravated [Recovered/Resolved]

NARRATIVE: CASE EVENT DATE: 20190816
